FAERS Safety Report 5878667-0 (Version None)
Quarter: 2008Q3

REPORT INFORMATION
  Report Type: 
  Country: None (occurrence: None)
  Receive Date: 20080912
  Receipt Date: 20080903
  Transmission Date: 20090109
  Serious: Yes (Other)
  Sender: FDA-Public Use
  Company Number: US-JNJFOC-20080800142

PATIENT
  Sex: Male
  Weight: 82.56 kg

DRUGS (4)
  1. REMICADE [Suspect]
     Indication: RHEUMATOID ARTHRITIS
     Dosage: 3 YEARS
     Route: 042
  2. TREXALL [Concomitant]
  3. CELEBREX [Concomitant]
  4. PREDNISONE 5 [Concomitant]

REACTIONS (3)
  - ATRIAL FIBRILLATION [None]
  - LYME DISEASE [None]
  - TENOSYNOVITIS [None]
